FAERS Safety Report 11302824 (Version 1)
Quarter: 2015Q3

REPORT INFORMATION
  Report Type: Spontaneous
  Country: US (occurrence: None)
  Receive Date: 20150723
  Receipt Date: 20150723
  Transmission Date: 20151125
  Serious: Yes (Life-Threatening, Hospitalization)
  Sender: FDA-Public Use
  Company Number: None

PATIENT
  Age: 67 Year
  Sex: Male
  Weight: 85.2 kg

DRUGS (20)
  1. ALPRAZOLAM. [Concomitant]
     Active Substance: ALPRAZOLAM
  2. CARBOPLATIN. [Suspect]
     Active Substance: CARBOPLATIN
     Indication: LUNG NEOPLASM MALIGNANT
     Route: 042
     Dates: start: 20140911, end: 20140911
  3. ODANSETRON [Concomitant]
     Active Substance: ONDANSETRON
  4. RANITIDINE [Concomitant]
     Active Substance: RANITIDINE\RANITIDINE HYDROCHLORIDE
  5. ONDANSETRON [Concomitant]
     Active Substance: ONDANSETRON
  6. PROCHLORPERAZINE. [Concomitant]
     Active Substance: PROCHLORPERAZINE
  7. TAMSULOSIN HCL [Concomitant]
     Active Substance: TAMSULOSIN
  8. PACLITAXEL. [Concomitant]
     Active Substance: PACLITAXEL
  9. BUDESONIDE. [Concomitant]
     Active Substance: BUDESONIDE
  10. FINASTERIDE. [Concomitant]
     Active Substance: FINASTERIDE
  11. OMEPRAZOLE. [Concomitant]
     Active Substance: OMEPRAZOLE
  12. POLYSTYRENE SUSP [Concomitant]
  13. GUAIFENESIN. [Concomitant]
     Active Substance: GUAIFENESIN
  14. TIOTROPIUM [Concomitant]
     Active Substance: TIOTROPIUM
  15. TRAZODONE [Concomitant]
     Active Substance: TRAZODONE HYDROCHLORIDE
  16. CARBIDOPA/LEVODOPA [Concomitant]
     Active Substance: CARBIDOPA\LEVODOPA
  17. FERROUS SULFATE [Concomitant]
     Active Substance: FERROUS SULFATE\FERROUS SULFATE, DRIED
  18. DEXAMETHASONE. [Concomitant]
     Active Substance: DEXAMETHASONE
  19. DIPHENHYDRAMINE. [Concomitant]
     Active Substance: DIPHENHYDRAMINE
  20. G-CSF [Concomitant]
     Active Substance: GRANULOCYTE COLONY-STIMULATING FACTOR NOS

REACTIONS (2)
  - Hypotension [None]
  - Cardio-respiratory arrest [None]

NARRATIVE: CASE EVENT DATE: 20140911
